FAERS Safety Report 8487226-5 (Version None)
Quarter: 2012Q3

REPORT INFORMATION
  Report Type: 
  Country: None (occurrence: None)
  Receive Date: 20120705
  Receipt Date: 20120620
  Transmission Date: 20120928
  Serious: Yes (Hospitalization)
  Sender: FDA-Public Use
  Company Number: TW-ROCHE-1080135

PATIENT
  Age: 90 Year
  Sex: Female

DRUGS (2)
  1. OSELTAMIVIR [Suspect]
     Indication: INFLUENZA
     Dates: start: 20100824, end: 20100826
  2. CARVEDILOL [Concomitant]
     Indication: HYPERTENSION

REACTIONS (3)
  - AGITATION [None]
  - DELIRIUM [None]
  - ABNORMAL BEHAVIOUR [None]
